FAERS Safety Report 11824264 (Version 1)
Quarter: 2015Q4

REPORT INFORMATION
  Report Type: Spontaneous
  Country: US (occurrence: US)
  Receive Date: 20151210
  Receipt Date: 20151210
  Transmission Date: 20160305
  Serious: Yes (Death, Hospitalization)
  Sender: FDA-Public Use
  Company Number: US-JNJFOC-20151204151

PATIENT
  Age: 20 Year
  Sex: Female

DRUGS (2)
  1. TOPIRAMATE. [Suspect]
     Active Substance: TOPIRAMATE
     Indication: PRODUCT USED FOR UNKNOWN INDICATION
     Route: 048
  2. ETHANOL [Suspect]
     Active Substance: ALCOHOL
     Indication: PRODUCT USED FOR UNKNOWN INDICATION
     Route: 048

REACTIONS (13)
  - Haemodynamic instability [Fatal]
  - Brain oedema [Fatal]
  - Unresponsive to stimuli [Fatal]
  - Completed suicide [Fatal]
  - Seizure [Fatal]
  - Hypothermia [Fatal]
  - Metabolic acidosis [Fatal]
  - Malaise [Fatal]
  - Hypotension [Fatal]
  - Pupil fixed [Fatal]
  - Lethargy [Fatal]
  - Toxicity to various agents [Fatal]
  - Brain herniation [Fatal]
